FAERS Safety Report 9736777 (Version 2)
Quarter: 2014Q2

REPORT INFORMATION
  Report Type: Spontaneous
  Country: US (occurrence: US)
  Receive Date: 20131206
  Receipt Date: 20140421
  Transmission Date: 20141212
  Serious: No
  Sender: FDA-Public Use
  Company Number: US-BIOGENIDEC-2013BI093401

PATIENT
  Age: 33 Year
  Sex: Female

DRUGS (3)
  1. TECFIDERA [Suspect]
     Indication: MULTIPLE SCLEROSIS
     Dates: start: 20130916
  2. TECFIDERA [Suspect]
     Indication: MULTIPLE SCLEROSIS
     Route: 048
     Dates: start: 20130919
  3. TECFIDERA [Suspect]
     Indication: MULTIPLE SCLEROSIS

REACTIONS (6)
  - Nasal congestion [Not Recovered/Not Resolved]
  - Rhinorrhoea [Recovered/Resolved]
  - Respiratory tract congestion [Not Recovered/Not Resolved]
  - Cough [Not Recovered/Not Resolved]
  - Hypertension [Recovered/Resolved]
  - Heart rate increased [Recovered/Resolved]
